FAERS Safety Report 17543650 (Version 1)
Quarter: 2020Q1

REPORT INFORMATION
  Report Type: Spontaneous
  Country: US (occurrence: US)
  Receive Date: 20200316
  Receipt Date: 20200316
  Transmission Date: 20200409
  Serious: No
  Sender: FDA-Public Use
  Company Number: US-009507513-2003USA005239

PATIENT
  Age: 4 Year
  Sex: Male

DRUGS (3)
  1. CANCIDAS [Suspect]
     Active Substance: CASPOFUNGIN ACETATE
     Indication: CUTANEOUS MUCORMYCOSIS
     Dosage: 70 MILLIGRAM/SQ. METER, QD
  2. NOXAFIL [Suspect]
     Active Substance: POSACONAZOLE
     Indication: CUTANEOUS MUCORMYCOSIS
     Dosage: 4 MILLIGRAM/KILOGRAM, Q8H
     Route: 048
  3. AMPHOTERICIN B. [Concomitant]
     Active Substance: AMPHOTERICIN B
     Indication: CUTANEOUS MUCORMYCOSIS
     Dosage: 5 MILLIGRAM/KILOGRAM, QD

REACTIONS (1)
  - Off label use [Unknown]
